FAERS Safety Report 23057566 (Version 1)
Quarter: 2023Q4

REPORT INFORMATION
  Report Type: Report from Study
  Country: IT (occurrence: IT)
  Receive Date: 20231012
  Receipt Date: 20231012
  Transmission Date: 20240110
  Serious: Yes (Hospitalization, Other)
  Sender: FDA-Public Use
  Company Number: IT-IPSEN Group, Research and Development-2023-23172

PATIENT

DRUGS (2)
  1. CABOZANTINIB [Suspect]
     Active Substance: CABOZANTINIB
     Indication: Gastroenteropancreatic neuroendocrine tumour disease
     Dosage: 40 MG, QD
     Route: 065
     Dates: start: 20220530
  2. KEPPRA [Concomitant]
     Active Substance: LEVETIRACETAM
     Dosage: 500 MG, 1 TABLET 2 TIMES/DAY
     Route: 065

REACTIONS (3)
  - Hypoxic-ischaemic encephalopathy [Unknown]
  - SARS-CoV-2 test positive [Unknown]
  - Off label use [Unknown]

NARRATIVE: CASE EVENT DATE: 20220530
